FAERS Safety Report 9280779 (Version 1)
Quarter: 2013Q2

REPORT INFORMATION
  Report Type: Spontaneous
  Country: US (occurrence: US)
  Receive Date: 20130509
  Receipt Date: 20130509
  Transmission Date: 20140414
  Serious: Yes (Hospitalization)
  Sender: FDA-Public Use
  Company Number: US-PFIZER INC-2013143412

PATIENT
  Age: 54 Year
  Sex: Male
  Weight: 90.7 kg

DRUGS (9)
  1. CHANTIX [Suspect]
     Indication: SMOKING CESSATION THERAPY
     Dosage: UNK
  2. NORCO [Concomitant]
     Indication: MUSCULOSKELETAL PAIN
     Dosage: 10/225 MG, AS NEEDED
  3. NORCO [Concomitant]
     Indication: NECK PAIN
  4. NORCO [Concomitant]
     Indication: BACK PAIN
  5. METOPROLOL [Concomitant]
     Indication: HYPERTENSION
     Dosage: UNK, 2X/DAY
  6. TRAZODONE [Concomitant]
     Indication: SLEEP DISORDER
     Dosage: 50 MG, 1X/DAY
  7. LISINOPRIL W/HYDROCHLOROTHIAZIDE [Concomitant]
     Dosage: 20/25 MG, 1X/DAY
  8. EFFIENT [Concomitant]
     Indication: ANTICOAGULANT THERAPY
     Dosage: 10 MG, 1X/DAY
  9. ATORVASTATIN [Concomitant]
     Indication: BLOOD CHOLESTEROL INCREASED
     Dosage: 40 MG, 1X/DAY

REACTIONS (2)
  - Cardiac disorder [Unknown]
  - Drug ineffective [Unknown]
